FAERS Safety Report 18307792 (Version 3)
Quarter: 2020Q3

REPORT INFORMATION
  Report Type: Spontaneous
  Country: US (occurrence: US)
  Receive Date: 20200924
  Receipt Date: 20200928
  Transmission Date: 20201103
  Serious: Yes (Other)
  Sender: FDA-Public Use
  Company Number: US-PFIZER INC-2020364663

PATIENT
  Age: 39 Year
  Sex: Female

DRUGS (1)
  1. DEPO?PROVERA [Suspect]
     Active Substance: MEDROXYPROGESTERONE ACETATE
     Dosage: UNK

REACTIONS (13)
  - Hyperthyroidism [Unknown]
  - Malaise [Unknown]
  - Middle insomnia [Unknown]
  - Fatigue [Unknown]
  - Thirst [Unknown]
  - Temperature regulation disorder [Unknown]
  - Asthenia [Unknown]
  - Hunger [Unknown]
  - Product dose omission issue [Unknown]
  - Blood glucose decreased [Unknown]
  - Hypothyroidism [Unknown]
  - Hypoglycaemia [Not Recovered/Not Resolved]
  - Menstruation delayed [Unknown]

NARRATIVE: CASE EVENT DATE: 20200821
